FAERS Safety Report 8197679-8 (Version None)
Quarter: 2012Q1

REPORT INFORMATION
  Report Type: 
  Country: None (occurrence: None)
  Receive Date: 20120307
  Receipt Date: 20120224
  Transmission Date: 20120608
  Serious: Yes (Death, Disabling, Other)
  Sender: FDA-Public Use
  Company Number: 2008AL011228

PATIENT
  Age: 66 Year
  Sex: Male

DRUGS (15)
  1. PREDNISONE [Concomitant]
  2. CARTIA XT [Concomitant]
  3. GUAIFENESIN [Concomitant]
  4. FLOMAX [Concomitant]
  5. DIGOXIN [Suspect]
     Indication: PRODUCT USED FOR UNKNOWN INDICATION
     Dosage: 0.25 MG;PO
     Route: 048
     Dates: start: 20040101, end: 20061017
  6. COMBIVENT [Concomitant]
  7. PROTONIX [Concomitant]
  8. FEXOFENADINE [Concomitant]
  9. NEXIUM [Concomitant]
  10. TUSSIONEX [Concomitant]
  11. DILTIAZEM HCL [Concomitant]
  12. LIPITOR [Concomitant]
  13. MUCINEX [Concomitant]
  14. CEPHALEXIN [Concomitant]
  15. FUROSEMIDE [Concomitant]

REACTIONS (13)
  - ANXIETY [None]
  - ANHEDONIA [None]
  - ARRHYTHMIA [None]
  - FAMILY STRESS [None]
  - NAUSEA [None]
  - PAIN [None]
  - DYSPEPSIA [None]
  - WEIGHT DECREASED [None]
  - TOXICITY TO VARIOUS AGENTS [None]
  - DIZZINESS [None]
  - SUDDEN DEATH [None]
  - MULTIPLE INJURIES [None]
  - ECONOMIC PROBLEM [None]
